FAERS Safety Report 11424849 (Version 1)
Quarter: 2015Q3

REPORT INFORMATION
  Report Type: Spontaneous
  Country: US (occurrence: US)
  Receive Date: 20150821
  Receipt Date: 20150821
  Transmission Date: 20151125
  Serious: No
  Sender: FDA-Public Use
  Company Number: US-ELI_LILLY_AND_COMPANY-US201212004150

PATIENT
  Age: 32 Year
  Sex: Female

DRUGS (1)
  1. HUMULIN N [Suspect]
     Active Substance: INSULIN HUMAN
     Indication: GESTATIONAL DIABETES
     Dosage: 30 U, EACH MORNING
     Dates: start: 201211

REACTIONS (2)
  - Exposure during pregnancy [Not Recovered/Not Resolved]
  - Incorrect product storage [Unknown]

NARRATIVE: CASE EVENT DATE: 201211
